FAERS Safety Report 22234979 (Version 3)
Quarter: 2023Q2

REPORT INFORMATION
  Report Type: Spontaneous
  Country: CN (occurrence: CN)
  Receive Date: 20230420
  Receipt Date: 20230502
  Transmission Date: 20230721
  Serious: Yes (Hospitalization, Other)
  Sender: FDA-Public Use
  Company Number: CN-SA-2022SA331624

PATIENT
  Age: 44 Year
  Sex: Female
  Weight: 54 kg

DRUGS (8)
  1. DOCETAXEL [Suspect]
     Active Substance: DOCETAXEL
     Indication: Squamous cell carcinoma of the cervix
     Dosage: 110 MG, IVGTT ON THE FIRST DAY, 21 DAYS AS A CYCLE
     Route: 042
     Dates: start: 2018, end: 2018
  2. SODIUM CHLORIDE [Concomitant]
     Active Substance: SODIUM CHLORIDE
     Indication: Supplementation therapy
     Dosage: MIXED WITH BOZHI GLYCOPEPTIDE INJECTION 10 MG
     Route: 042
     Dates: start: 2018
  3. SODIUM CHLORIDE [Concomitant]
     Active Substance: SODIUM CHLORIDE
     Dosage: 8 G, 2X/DAY
     Route: 048
  4. CARBOPLATIN [Concomitant]
     Active Substance: CARBOPLATIN
     Indication: Squamous cell carcinoma of the cervix
     Dosage: 510 MG, IVGTT ON THE FIRST DAY, 21 DAYS AS A CYCLE
     Route: 042
     Dates: start: 2018, end: 2018
  5. SHENG XUE BAO [Concomitant]
     Dosage: 250 ML, 1X/DAY
     Route: 042
  6. BOZHI GLYCOPEPTIDE [Concomitant]
     Dosage: 10 MG
  7. DEXAMETHASONE [Concomitant]
     Active Substance: DEXAMETHASONE
     Indication: Cervix carcinoma stage II
     Dosage: ON THE FIRST AND SECOND DAYS OF CHEMOTHERAPY(3 CYCLES)
     Route: 048
     Dates: start: 2018, end: 2018
  8. DEXAMETHASONE [Concomitant]
     Active Substance: DEXAMETHASONE
     Indication: Squamous cell carcinoma of the cervix
     Dosage: 7.5 MG TWICE A DAY ON THE 3RD TO 5TH DAY OF ADMISSION
     Route: 048
     Dates: start: 2018, end: 2018

REACTIONS (3)
  - Ascites [Recovered/Resolved]
  - Acute kidney injury [Recovered/Resolved]
  - Off label use [Unknown]

NARRATIVE: CASE EVENT DATE: 20180101
